FAERS Safety Report 6867530-4 (Version None)
Quarter: 2010Q3

REPORT INFORMATION
  Report Type: 
  Country: None (occurrence: None)
  Receive Date: 20100722
  Receipt Date: 20100722
  Transmission Date: 20110219
  Serious: Yes (Life-Threatening)
  Sender: FDA-Public Use
  Company Number: None

PATIENT
  Sex: Female
  Weight: 84.1 kg

DRUGS (1)
  1. PROPOFOL [Suspect]
     Indication: ANAESTHESIA
     Dosage: SEE SURGERY NOTES
     Dates: start: 20100603

REACTIONS (2)
  - COLLAPSE OF LUNG [None]
  - PRODUCT QUALITY ISSUE [None]
